FAERS Safety Report 13930518 (Version 2)
Quarter: 2017Q3

REPORT INFORMATION
  Report Type: Spontaneous
  Country: PT (occurrence: PT)
  Receive Date: 20170901
  Receipt Date: 20170927
  Transmission Date: 20171127
  Serious: Yes (Other)
  Sender: FDA-Public Use
  Company Number: PT-TEVA-800446ISR

PATIENT
  Age: 85 Year
  Sex: Male

DRUGS (3)
  1. IMATINIB [Suspect]
     Active Substance: IMATINIB
     Indication: CHRONIC MYELOID LEUKAEMIA
     Dates: start: 201510, end: 201512
  2. IVABRADINE [Concomitant]
     Active Substance: IVABRADINE
     Indication: MYOCARDIAL ISCHAEMIA
  3. IMATINIB [Suspect]
     Active Substance: IMATINIB
     Dates: start: 201409, end: 201410

REACTIONS (1)
  - Myocardial ischaemia [Recovering/Resolving]
